FAERS Safety Report 24596300 (Version 3)
Quarter: 2025Q1

REPORT INFORMATION
  Report Type: Spontaneous
  Country: US (occurrence: US)
  Receive Date: 20241110
  Receipt Date: 20250213
  Transmission Date: 20250408
  Serious: No
  Sender: SANOFI AVENTIS
  Company Number: US-SA-2024SA300288

PATIENT
  Age: 40 Year
  Sex: Female
  Weight: 81.64 kg

DRUGS (3)
  1. DUPIXENT [Suspect]
     Active Substance: DUPILUMAB
     Indication: Product used for unknown indication
     Dosage: 300 MG, QOW
     Route: 058
  2. RINVOQ [Concomitant]
     Active Substance: UPADACITINIB
  3. CELECOXIB [Concomitant]
     Active Substance: CELECOXIB

REACTIONS (6)
  - Condition aggravated [Recovered/Resolved]
  - Influenza [Recovered/Resolved]
  - COVID-19 [Recovered/Resolved]
  - Injection site pain [Unknown]
  - Wrong technique in product usage process [Unknown]
  - Incorrect dose administered [Unknown]

NARRATIVE: CASE EVENT DATE: 20240101
